FAERS Safety Report 25136945 (Version 1)
Quarter: 2025Q1

REPORT INFORMATION
  Report Type: Spontaneous
  Country: US (occurrence: US)
  Receive Date: 20250328
  Receipt Date: 20250328
  Transmission Date: 20250408
  Serious: Yes (Hospitalization)
  Sender: MERCK SHARP & DOHME LLC
  Company Number: US-009507513-2266380

PATIENT
  Age: 67 Year
  Sex: Female

DRUGS (19)
  1. SOTATERCEPT [Suspect]
     Active Substance: SOTATERCEPT
     Dates: start: 202501
  2. SOTATERCEPT [Suspect]
     Active Substance: SOTATERCEPT
  3. SOTATERCEPT [Suspect]
     Active Substance: SOTATERCEPT
  4. SOTATERCEPT [Suspect]
     Active Substance: SOTATERCEPT
  5. ALENDRONATE SODIUM [Suspect]
     Active Substance: ALENDRONATE SODIUM
  6. NORVASC [Suspect]
     Active Substance: AMLODIPINE BESYLATE
  7. ALLOPURINOL [Suspect]
     Active Substance: ALLOPURINOL
  8. VITAMIN D3 [Suspect]
     Active Substance: CHOLECALCIFEROL
  9. LOSARTAN [Suspect]
     Active Substance: LOSARTAN
  10. METAMUCIL [Suspect]
     Active Substance: PLANTAGO SEED
  11. COENZYME Q10 [Suspect]
     Active Substance: DIETARY SUPPLEMENT\UBIDECARENONE
  12. TYLENOL [Suspect]
     Active Substance: ACETAMINOPHEN
  13. UPTRAVI [Suspect]
     Active Substance: SELEXIPAG
  14. TADALAFIL [Suspect]
     Active Substance: TADALAFIL
     Indication: Pulmonary hypertension
     Dates: start: 202501, end: 202502
  15. LASIX [Suspect]
     Active Substance: FUROSEMIDE
  16. CARVEDILOL [Suspect]
     Active Substance: CARVEDILOL
  17. PEPCID [Suspect]
     Active Substance: FAMOTIDINE
  18. OMEPRAZOLE [Suspect]
     Active Substance: OMEPRAZOLE
  19. ZYRTEC [Suspect]
     Active Substance: CETIRIZINE HYDROCHLORIDE

REACTIONS (3)
  - Dyspnoea [Not Recovered/Not Resolved]
  - Headache [Unknown]
  - Rash [Unknown]

NARRATIVE: CASE EVENT DATE: 20250201
